FAERS Safety Report 6147102-X (Version None)
Quarter: 2009Q2

REPORT INFORMATION
  Report Type: 
  Country: None (occurrence: None)
  Receive Date: 20090407
  Receipt Date: 20090402
  Transmission Date: 20091009
  Serious: Yes (Other)
  Sender: FDA-Public Use
  Company Number: US-ALLERGAN-0904568US

PATIENT
  Sex: Female

DRUGS (3)
  1. BOTOX [Suspect]
     Indication: SKIN WRINKLING
     Dosage: 28 UNITS, SINGLE
     Route: 030
     Dates: start: 20090310, end: 20090310
  2. IMITREX [Concomitant]
     Indication: MIGRAINE
     Dosage: UNK, PRN
  3. MULTI-VITAMIN [Concomitant]

REACTIONS (1)
  - TRIGEMINAL NEURALGIA [None]
